FAERS Safety Report 7747079-7 (Version None)
Quarter: 2011Q3

REPORT INFORMATION
  Report Type: 
  Country: None (occurrence: None)
  Receive Date: 20110913
  Receipt Date: 20110909
  Transmission Date: 20111222
  Serious: No
  Sender: FDA-Public Use
  Company Number: PHHY2011US13148

PATIENT
  Sex: Male

DRUGS (5)
  1. VITAMIN D [Concomitant]
     Dosage: 1000 U, QD
     Route: 048
     Dates: start: 20070101
  2. GILENYA [Suspect]
     Indication: RELAPSING-REMITTING MULTIPLE SCLEROSIS
     Dosage: 0.5 MG, QD
     Route: 048
     Dates: start: 20101207, end: 20110120
  3. BACLOFEN [Concomitant]
     Dosage: 15 MG, QD
     Route: 048
     Dates: start: 20090120
  4. VIAGRA [Concomitant]
     Dosage: 100 MG, PRN
     Route: 048
     Dates: start: 20070101
  5. TAMSULOSIN HCL [Concomitant]
     Dosage: 0.4 MG, QD
     Route: 048
     Dates: start: 20070101

REACTIONS (2)
  - GAIT DISTURBANCE [None]
  - FEELING ABNORMAL [None]
